FAERS Safety Report 9275783 (Version 2)
Quarter: 2013Q3

REPORT INFORMATION
  Report Type: Spontaneous
  Country: US (occurrence: US)
  Receive Date: 20130507
  Receipt Date: 20130711
  Transmission Date: 20140515
  Serious: Yes (Hospitalization)
  Sender: FDA-Public Use
  Company Number: US-NOVOPROD-376886

PATIENT
  Age: 58 Year
  Sex: Female
  Weight: 83.9 kg

DRUGS (2)
  1. VICTOZA [Suspect]
     Indication: TYPE 2 DIABETES MELLITUS
     Dosage: UNKNOWN
     Route: 058
     Dates: start: 20120125, end: 20120326
  2. VICTOZA [Suspect]
     Dosage: 1.8 MG DAILY
     Route: 058
     Dates: start: 20120326, end: 20121009

REACTIONS (2)
  - Pancreatic carcinoma [Not Recovered/Not Resolved]
  - Pancreatitis [Recovered/Resolved]
